FAERS Safety Report 7400924-7 (Version None)
Quarter: 2011Q2

REPORT INFORMATION
  Report Type: 
  Country: None (occurrence: None)
  Receive Date: 20110407
  Receipt Date: 20110329
  Transmission Date: 20111010
  Serious: Yes (Hospitalization)
  Sender: FDA-Public Use
  Company Number: US-ASTRAZENECA-2011SE18173

PATIENT
  Age: 16711 Day
  Sex: Male

DRUGS (1)
  1. NEXIUM [Suspect]
     Route: 048

REACTIONS (5)
  - APPENDIX DISORDER [None]
  - ENTEROSTOMY [None]
  - GASTROINTESTINAL DISORDER [None]
  - DRUG DOSE OMISSION [None]
  - HERNIA [None]
